FAERS Safety Report 5389843-8 (Version None)
Quarter: 2007Q3

REPORT INFORMATION
  Report Type: 
  Country: None (occurrence: None)
  Receive Date: 20070718
  Receipt Date: 20070711
  Transmission Date: 20080115
  Serious: Yes (Other)
  Sender: FDA-Public Use
  Company Number: PHNU2007DE01619

PATIENT
  Age: 66 Year
  Sex: Female

DRUGS (1)
  1. PROVASIN TAB [Suspect]
     Indication: HYPERTENSION
     Dosage: 1 DF, QD
     Route: 048
     Dates: start: 20070319, end: 20070412

REACTIONS (1)
  - CUTANEOUS VASCULITIS [None]
